FAERS Safety Report 9316149 (Version 4)
Quarter: 2013Q4

REPORT INFORMATION
  Report Type: Spontaneous
  Country: US (occurrence: US)
  Receive Date: 20130530
  Receipt Date: 20131031
  Transmission Date: 20140711
  Serious: Yes (Hospitalization, Other)
  Sender: FDA-Public Use
  Company Number: US-009507513-1305USA013365

PATIENT
  Age: 61 Year
  Sex: Female

DRUGS (9)
  1. PEGINTRON [Suspect]
     Indication: HEPATITIS C
     Dosage: REDIPEN
     Dates: start: 20070101, end: 20070601
  2. PEGINTRON [Suspect]
     Dosage: UNK
     Dates: start: 20130527, end: 20130604
  3. PEGINTRON [Suspect]
     Dosage: 0.7 CC
     Dates: start: 20130901
  4. PEGINTRON [Suspect]
     Dosage: 0.4 CC
     Dates: start: 20130919
  5. PEGINTRON [Suspect]
     Dosage: UNK
     Dates: start: 20130901, end: 20131020
  6. REBETOL [Suspect]
     Indication: HEPATITIS C
     Dosage: UNK
     Route: 048
     Dates: start: 20070101, end: 20070601
  7. REBETOL [Suspect]
     Dosage: UNK
     Route: 048
     Dates: start: 20130527, end: 20130604
  8. REBETOL [Suspect]
     Dosage: UNK
     Route: 048
     Dates: start: 20130901, end: 20131020
  9. VICTRELIS [Suspect]
     Indication: HEPATITIS C
     Dosage: UNK
     Route: 048
     Dates: start: 20131008, end: 20131020

REACTIONS (14)
  - Dyspnoea [Unknown]
  - Heart rate increased [Unknown]
  - White blood cell count decreased [Unknown]
  - Chest pain [Unknown]
  - Dyspnoea [Unknown]
  - Hepatic enzyme increased [Unknown]
  - Incorrect dose administered [Unknown]
  - Fatigue [Unknown]
  - Chills [Unknown]
  - Headache [Unknown]
  - Eye disorder [Unknown]
  - Vision blurred [Unknown]
  - Back pain [Unknown]
  - White blood cell count decreased [Unknown]
